FAERS Safety Report 4778889-6 (Version None)
Quarter: 2005Q3

REPORT INFORMATION
  Report Type: 
  Country: None (occurrence: None)
  Receive Date: 20050922
  Receipt Date: 20050913
  Transmission Date: 20060218
  Serious: Yes (Life-Threatening, Hospitalization, Disabling, Other)
  Sender: FDA-Public Use
  Company Number: 2003-03-2250

PATIENT
  Age: 50 Year
  Sex: Female
  Weight: 93.8946 kg

DRUGS (3)
  1. PEG-INTRON [Suspect]
     Indication: HEPATITIS C
     Dosage: 150 MCG QWK SUBCUTANEOUS
     Route: 058
     Dates: start: 20021015, end: 20030128
  2. REBETOL [Suspect]
     Indication: HEPATITIS C
     Dosage: 1200 MG QD ORAL
     Route: 048
     Dates: start: 20021015, end: 20030128
  3. PROPYLTHIOCIL ORALS [Suspect]
     Indication: THYROTOXIC CRISIS
     Dosage: ORAL
     Route: 048
     Dates: start: 20030201

REACTIONS (24)
  - ABDOMINAL PAIN [None]
  - ALOPECIA [None]
  - ANXIETY [None]
  - DEPRESSED MOOD [None]
  - DISTURBANCE IN ATTENTION [None]
  - DIZZINESS [None]
  - DYSPHAGIA [None]
  - FIBROMYALGIA [None]
  - HAEMOPTYSIS [None]
  - HAEMORRHOIDS [None]
  - HYPERREFLEXIA [None]
  - HYPERTHYROIDISM [None]
  - HYPOTHYROIDISM [None]
  - LUPUS-LIKE SYNDROME [None]
  - MYOCARDIAL INFARCTION [None]
  - NECK PAIN [None]
  - OVERDOSE [None]
  - PYREXIA [None]
  - SWELLING [None]
  - THYROIDITIS [None]
  - THYROTOXIC CRISIS [None]
  - TREATMENT NONCOMPLIANCE [None]
  - TREMOR [None]
  - VISION BLURRED [None]
